FAERS Safety Report 15772508 (Version 1)
Quarter: 2018Q4

REPORT INFORMATION
  Report Type: Spontaneous
  Country: JP (occurrence: JP)
  Receive Date: 20181228
  Receipt Date: 20181228
  Transmission Date: 20190205
  Serious: Yes (Death, Other)
  Sender: FDA-Public Use
  Company Number: JP-SAKK-BA201402917001

PATIENT
  Age: 59 Year
  Sex: Male

DRUGS (2)
  1. DOCETAXEL. [Suspect]
     Active Substance: DOCETAXEL
     Indication: SKIN ANGIOSARCOMA
     Route: 065
  2. DOCETAXEL. [Suspect]
     Active Substance: DOCETAXEL
     Dosage: 75 MG/M2, QM
     Route: 065

REACTIONS (7)
  - Pleural effusion [Unknown]
  - Scrotal oedema [Unknown]
  - Hyaluronic acid decreased [Unknown]
  - Localised oedema [Recovering/Resolving]
  - Skin fibrosis [Unknown]
  - Oedema peripheral [Recovering/Resolving]
  - Scleroderma [Recovered/Resolved]

NARRATIVE: CASE EVENT DATE: 201212
